FAERS Safety Report 7206040-1 (Version None)
Quarter: 2010Q4

REPORT INFORMATION
  Report Type: 
  Country: None (occurrence: None)
  Receive Date: 20101220
  Receipt Date: 20101203
  Transmission Date: 20110411
  Serious: Yes (Other)
  Sender: FDA-Public Use
  Company Number: AUR-APL-2010-03057

PATIENT
  Sex: Male

DRUGS (2)
  1. SIMVASTATIN [Suspect]
  2. EZETIMIBE [Suspect]

REACTIONS (1)
  - TENDONITIS [None]
